FAERS Safety Report 4504587-X (Version None)
Quarter: 2004Q4

REPORT INFORMATION
  Report Type: 
  Country: None (occurrence: None)
  Receive Date: 20041116
  Receipt Date: 20041104
  Transmission Date: 20050328
  Serious: Yes (Life-Threatening, Hospitalization)
  Sender: FDA-Public Use
  Company Number: 02100-JPN-04-0286

PATIENT
  Age: 76 Year
  Sex: Male

DRUGS (2)
  1. CILOSTAZOL [Suspect]
     Indication: CEREBRAL INFARCTION
     Dosage: 150 MG ORAL
     Route: 048
     Dates: start: 20040611, end: 20041010
  2. GLYCYRRHIZA POWDER COMBINED DRUG [Concomitant]

REACTIONS (4)
  - DISEASE RECURRENCE [None]
  - PNEUMONIA ASPIRATION [None]
  - PUTAMEN HAEMORRHAGE [None]
  - RESPIRATORY DISORDER [None]
